FAERS Safety Report 8848665 (Version 1)
Quarter: 2012Q4

REPORT INFORMATION
  Report Type: Spontaneous
  Country: BR (occurrence: None)
  Receive Date: 20121015
  Receipt Date: 20121015
  Transmission Date: 20130627
  Serious: Yes (Other)
  Sender: FDA-Public Use
  Company Number: VAL_00912_2012

PATIENT
  Age: 51 Year
  Sex: Female

DRUGS (2)
  1. METHERGINE [Suspect]
     Indication: MENSTRUATION IRREGULAR
     Dosage: 0.125 mg QD Oral
     Route: 048
     Dates: start: 201207
  2. TRANSAMIN [Concomitant]

REACTIONS (1)
  - Haemorrhage [None]
